FAERS Safety Report 4840389-2 (Version None)
Quarter: 2005Q4

REPORT INFORMATION
  Report Type: 
  Country: None (occurrence: None)
  Receive Date: 20051019
  Receipt Date: 20050824
  Transmission Date: 20060501
  Serious: Yes (Other)
  Sender: FDA-Public Use
  Company Number: 05-000651

PATIENT
  Age: 43 Year
  Sex: Female
  Weight: 90.7 kg

DRUGS (6)
  1. FEMRING [Suspect]
     Indication: MENOPAUSAL SYMPTOMS
     Dosage: 0.1 MG, QD, VAGINAL
     Route: 067
     Dates: start: 20050201, end: 20050815
  2. TARKA [Concomitant]
  3. CLONIDINE [Concomitant]
  4. METHADONE HCL [Concomitant]
  5. PERCOCET [Concomitant]
  6. XANAX [Concomitant]

REACTIONS (1)
  - VAGINAL HAEMORRHAGE [None]
